FAERS Safety Report 10343187 (Version 2)
Quarter: 2014Q3

REPORT INFORMATION
  Report Type: Report from Study
  Country: US (occurrence: US)
  Receive Date: 20140725
  Receipt Date: 20140815
  Transmission Date: 20150326
  Serious: Yes (Other)
  Sender: FDA-Public Use
  Company Number: US-ALEXION PHARMACEUTICALS INC.-A201402888

PATIENT

DRUGS (2)
  1. SOLIRIS [Suspect]
     Active Substance: ECULIZUMAB
     Indication: HAEMOLYTIC URAEMIC SYNDROME
     Dosage: 1200 MG, Q2W
     Route: 042
     Dates: start: 20130613
  2. BENADRYL [Suspect]
     Active Substance: DIPHENHYDRAMINE HYDROCHLORIDE
     Indication: RASH
     Dosage: UNK
     Route: 065
     Dates: start: 20140731

REACTIONS (5)
  - Rash [Unknown]
  - Nausea [Unknown]
  - Haemoglobin decreased [Not Recovered/Not Resolved]
  - Anaemia [Unknown]
  - Cough [Unknown]

NARRATIVE: CASE EVENT DATE: 20140701
